FAERS Safety Report 7407147-6 (Version None)
Quarter: 2011Q2

REPORT INFORMATION
  Report Type: 
  Country: None (occurrence: None)
  Receive Date: 20110411
  Receipt Date: 20110318
  Transmission Date: 20111010
  Serious: No
  Sender: FDA-Public Use
  Company Number: US-B.I. PHARMACEUTICALS,INC./RIDGEFIELD-2011-BP-08673BP

PATIENT
  Age: 88 Year
  Sex: Female

DRUGS (2)
  1. SPIRIVA [Suspect]
     Dosage: 18 MCG
     Route: 055
     Dates: start: 20110301
  2. ADVAIR HFA [Concomitant]
     Route: 055

REACTIONS (3)
  - WHEEZING [None]
  - COUGH [None]
  - SOMNOLENCE [None]
